FAERS Safety Report 16240728 (Version 5)
Quarter: 2023Q2

REPORT INFORMATION
  Report Type: Report from Study
  Country: CA (occurrence: CA)
  Receive Date: 20190425
  Receipt Date: 20230629
  Transmission Date: 20230721
  Serious: Yes (Hospitalization, Other)
  Sender: FDA-Public Use
  Company Number: CA-IONIS PHARMACEUTICALS, INC.-2019-TEG-027

PATIENT

DRUGS (10)
  1. TEGSEDI [Suspect]
     Active Substance: INOTERSEN SODIUM
     Indication: Hereditary neuropathic amyloidosis
     Dosage: 284 MILLIGRAM, QW
     Route: 058
     Dates: start: 20190227, end: 20210818
  2. GABAPENTIN [Concomitant]
     Active Substance: GABAPENTIN
     Indication: Neuralgia
     Dosage: 400 MG, QD
     Route: 048
     Dates: start: 20180116
  3. GABAPENTIN [Concomitant]
     Active Substance: GABAPENTIN
     Indication: Pain
  4. GABAPENTIN [Concomitant]
     Active Substance: GABAPENTIN
     Indication: Restless legs syndrome
  5. RABEPRAZOLE [Concomitant]
     Active Substance: RABEPRAZOLE
     Indication: Gastrooesophageal reflux disease
     Dosage: 10 MG, BID
     Route: 048
     Dates: start: 20180412
  6. DIFLUNISAL [Concomitant]
     Active Substance: DIFLUNISAL
     Indication: Amyloidosis
     Dosage: 500 MG, BID
     Route: 048
     Dates: start: 20171211
  7. DIFLUNISAL [Concomitant]
     Active Substance: DIFLUNISAL
     Dosage: 500 MILLIGRAM, BID
     Route: 048
     Dates: start: 201711, end: 202010
  8. VITAMIN A [Concomitant]
     Active Substance: VITAMIN A
     Indication: Supplementation therapy
     Dosage: 120 000 UNITS/DAY (GRADUALLY INCREASED SINCE BEGINNING)
     Route: 048
     Dates: start: 201803
  9. GREEN TEA LEAF [Concomitant]
     Active Substance: GREEN TEA LEAF
     Indication: Product used for unknown indication
     Dosage: 400 MG, QD
     Route: 048
  10. MINERALS\VITAMINS [Concomitant]
     Active Substance: MINERALS\VITAMINS
     Indication: Vitamin A deficiency
     Dosage: UNK
     Route: 065
     Dates: start: 201801, end: 201807

REACTIONS (18)
  - Eye disorder [Recovered/Resolved with Sequelae]
  - Vitreous disorder [Recovered/Resolved]
  - Vision blurred [Recovered/Resolved]
  - Eosinophil count increased [Unknown]
  - Vitamin A decreased [Unknown]
  - Vitreous floaters [Not Recovered/Not Resolved]
  - Aspartate aminotransferase increased [Unknown]
  - Blood creatine phosphokinase increased [Unknown]
  - Vitreous opacities [Unknown]
  - Dry eye [Unknown]
  - Inappropriate schedule of product administration [Recovered/Resolved]
  - Fatigue [Not Recovered/Not Resolved]
  - Chills [Not Recovered/Not Resolved]
  - Muscle spasms [Not Recovered/Not Resolved]
  - Prealbumin decreased [Not Recovered/Not Resolved]
  - Platelet count decreased [Recovered/Resolved]
  - Creatinine urine abnormal [Unknown]
  - Protein urine present [Unknown]

NARRATIVE: CASE EVENT DATE: 20190305
